FAERS Safety Report 6714489-6 (Version None)
Quarter: 2010Q2

REPORT INFORMATION
  Report Type: 
  Country: None (occurrence: None)
  Receive Date: 20100506
  Receipt Date: 20100428
  Transmission Date: 20101027
  Serious: Yes (Other)
  Sender: FDA-Public Use
  Company Number: NL-AMGEN-QUU409217

PATIENT
  Sex: Female

DRUGS (3)
  1. NEULASTA [Suspect]
     Indication: CHEMOTHERAPY
     Route: 065
  2. PANTOZOL [Concomitant]
  3. KYTRIL [Concomitant]

REACTIONS (6)
  - EAR DISORDER [None]
  - FACIAL PAIN [None]
  - HYPERSENSITIVITY [None]
  - INFLUENZA LIKE ILLNESS [None]
  - MUSCULOSKELETAL DISCOMFORT [None]
  - SENSATION OF FOREIGN BODY [None]
